FAERS Safety Report 7667905-X (Version None)
Quarter: 2011Q3

REPORT INFORMATION
  Report Type: 
  Country: None (occurrence: None)
  Receive Date: 20110808
  Receipt Date: 20110727
  Transmission Date: 20111222
  Serious: Yes (Other)
  Sender: FDA-Public Use
  Company Number: US-BIOGENIDEC-2010BI015710

PATIENT
  Age: 24 Year
  Sex: Female
  Weight: 62 kg

DRUGS (4)
  1. TYSABRI [Suspect]
     Route: 042
     Dates: start: 20101006, end: 20101006
  2. MEDROL [Concomitant]
     Dates: start: 20100228
  3. NAPROXEN (ALEVE) [Concomitant]
  4. TYSABRI [Suspect]
     Indication: MULTIPLE SCLEROSIS
     Route: 042
     Dates: start: 20100409, end: 20100409

REACTIONS (1)
  - IDIOPATHIC THROMBOCYTOPENIC PURPURA [None]
